FAERS Safety Report 25116953 (Version 1)
Quarter: 2025Q1

REPORT INFORMATION
  Report Type: Spontaneous
  Country: ES (occurrence: ES)
  Receive Date: 20250325
  Receipt Date: 20250325
  Transmission Date: 20250409
  Serious: Yes (Other)
  Sender: TEVA
  Company Number: None

PATIENT
  Age: 71 Year
  Sex: Female
  Weight: 47 kg

DRUGS (2)
  1. GABAPENTIN [Suspect]
     Active Substance: GABAPENTIN
     Indication: Product used for unknown indication
     Dosage: GABAPENTINA TEVA 100 MG CAPSULAS DURAS EFG , 90 C??PSULAS
     Route: 048
     Dates: start: 20250214
  2. DULOXETINE HYDROCHLORIDE [Suspect]
     Active Substance: DULOXETINE HYDROCHLORIDE
     Indication: Product used for unknown indication
     Dosage: XERISTAR 30 MG CAPSULAS DURAS GASTRORRESISTENTES EFG 28 C??PSULAS (BLISTER PVC/PVDC-AL)
     Route: 048
     Dates: start: 20250214, end: 20250220

REACTIONS (1)
  - Urinary retention [Recovered/Resolved]

NARRATIVE: CASE EVENT DATE: 20250220
